FAERS Safety Report 7496292-5 (Version None)
Quarter: 2011Q2

REPORT INFORMATION
  Report Type: 
  Country: None (occurrence: None)
  Receive Date: 20110523
  Receipt Date: 20110511
  Transmission Date: 20111010
  Serious: No
  Sender: FDA-Public Use
  Company Number: US-B.I. PHARMACEUTICALS,INC./RIDGEFIELD-2011-BP-12875BP

PATIENT
  Sex: Male

DRUGS (9)
  1. PRADAXA [Suspect]
     Indication: ATRIAL FIBRILLATION
     Dosage: 300 MG
     Route: 048
     Dates: start: 20110401, end: 20110401
  2. VYTORIN [Concomitant]
     Indication: BLOOD CHOLESTEROL INCREASED
  3. NORVASC [Concomitant]
     Indication: BLOOD DISORDER
  4. MULTAQ [Suspect]
     Indication: ATRIAL FIBRILLATION
     Dates: start: 20110401
  5. ISOSORBIDE DINITRATE [Concomitant]
     Indication: ANGINA PECTORIS
  6. ASPIRIN [Concomitant]
     Indication: PROPHYLAXIS
  7. NIASPAN [Concomitant]
     Indication: PLATELET DISORDER
  8. RANEXA [Concomitant]
     Indication: ANGINA PECTORIS
  9. PLAVIX [Concomitant]
     Indication: PLATELET DISORDER

REACTIONS (5)
  - RECTAL HAEMORRHAGE [None]
  - DYSPNOEA [None]
  - HEART RATE INCREASED [None]
  - ASTHENIA [None]
  - ABDOMINAL DISCOMFORT [None]
